FAERS Safety Report 7212433-9 (Version None)
Quarter: 2010Q4

REPORT INFORMATION
  Report Type: 
  Country: None (occurrence: None)
  Receive Date: 20101229
  Receipt Date: 20101217
  Transmission Date: 20110411
  Serious: Yes (Death, Other)
  Sender: FDA-Public Use
  Company Number: SE-ACCORD-007375

PATIENT
  Age: 31 Year
  Sex: Male

DRUGS (5)
  1. ETOPOSIDE [Suspect]
     Indication: TESTIS CANCER
     Dosage: 3.20-G INTRAVENOUS
     Route: 042
     Dates: start: 20100713, end: 20100716
  2. CARBOPLATIN [Suspect]
     Indication: TESTIS CANCER
     Dosage: 820.00-MG INTRAVENOUS
     Route: 042
     Dates: start: 20100915, end: 20100918
  3. PACLITAXEL [Suspect]
     Indication: TESTIS CANCER
     Dosage: 2.00-DOSAGE INTRAVENOUS
     Route: 042
     Dates: start: 20100914, end: 20100917
  4. HOLOXAN (HOLOXAN) [Suspect]
     Indication: TESTIS CANCER
     Dosage: 2.70-G INTRAVENOUS
     Route: 042
     Dates: start: 20100915, end: 20100918
  5. SENDOXAN (SENDOXAN) [Suspect]
     Indication: TESTIS CANCER
     Dosage: 10.00-G INTRAVENOUS
     Route: 042
     Dates: start: 20100713, end: 20100716

REACTIONS (5)
  - ANURIA [None]
  - CEREBRAL INFARCTION [None]
  - NEUTROPENIA [None]
  - OFF LABEL USE [None]
  - SEPTIC SHOCK [None]
